FAERS Safety Report 10402327 (Version 7)
Quarter: 2015Q1

REPORT INFORMATION
  Report Type: Spontaneous
  Country: US (occurrence: US)
  Receive Date: 20140822
  Receipt Date: 20150312
  Transmission Date: 20150720
  Serious: No
  Sender: FDA-Public Use
  Company Number: US-PFIZER INC-2014233309

PATIENT
  Age: 75 Year
  Sex: Female
  Weight: 56 kg

DRUGS (13)
  1. PROMETHAZINE HYDROCHLORIDE. [Concomitant]
     Active Substance: PROMETHAZINE HYDROCHLORIDE
     Dosage: 25 MG, 1 TABLET AT BEDTIME ONCE A DAY
     Route: 048
  2. NEURONTIN [Suspect]
     Active Substance: GABAPENTIN
     Dosage: 800 MG, 1X/DAY
  3. NEURONTIN [Suspect]
     Active Substance: GABAPENTIN
     Dosage: 1600 MG, 4X/DAY (2-800 MG 4X/DAY)
  4. RIFAMPIN. [Concomitant]
     Active Substance: RIFAMPIN
     Dosage: UNK
  5. NEURONTIN [Suspect]
     Active Substance: GABAPENTIN
     Indication: BACK PAIN
     Dosage: 800 MG, 1X/DAY
     Route: 048
  6. NEURONTIN [Suspect]
     Active Substance: GABAPENTIN
     Indication: PAIN
     Dosage: 800 MG, 2X/DAY
  7. NEURONTIN [Suspect]
     Active Substance: GABAPENTIN
     Indication: BACK DISORDER
     Dosage: 800 MG, 3X/DAY
  8. NEURONTIN [Suspect]
     Active Substance: GABAPENTIN
     Dosage: 800 MG FIVE DAILY
  9. MECLIZINE HCL [Concomitant]
     Active Substance: MECLIZINE HYDROCHLORIDE
     Dosage: 25 MG, 1 TABLET THREE TIMES A DAY
     Route: 048
  10. ALBUTEROL SULFATE. [Concomitant]
     Active Substance: ALBUTEROL SULFATE
  11. LEVOFLOXACIN. [Concomitant]
     Active Substance: LEVOFLOXACIN
  12. NEURONTIN [Suspect]
     Active Substance: GABAPENTIN
     Dosage: 800 MG, 4X/DAY
  13. HYDROMORPHONE HYDROCHLORIDE. [Concomitant]
     Active Substance: HYDROMORPHONE HYDROCHLORIDE
     Indication: PAIN
     Dosage: 2 MG, AS NEEDED EVERY 6 HRS

REACTIONS (1)
  - Product use issue [Unknown]
